FAERS Safety Report 17599384 (Version 1)
Quarter: 2020Q1

REPORT INFORMATION
  Report Type: Spontaneous
  Country: CA (occurrence: CA)
  Receive Date: 20200330
  Receipt Date: 20200330
  Transmission Date: 20200409
  Serious: Yes (Hospitalization)
  Sender: FDA-Public Use
  Company Number: CA-TEVA-2020-CA-1215019

PATIENT
  Age: 67 Year
  Sex: Male
  Weight: 74.91 kg

DRUGS (6)
  1. OLMESARTAN [Suspect]
     Active Substance: OLMESARTAN
     Indication: HYPERTENSION
     Dosage: 40 MILLIGRAM DAILY;
     Route: 048
  2. MULTIVITAMINE(S) [Concomitant]
     Active Substance: VITAMINS
  3. ATORVASTATIN [Concomitant]
     Active Substance: ATORVASTATIN
  4. ASA [Concomitant]
     Active Substance: ASPIRIN
  5. METOPROLOL. [Concomitant]
     Active Substance: METOPROLOL
  6. LOPERAMIDE [Concomitant]
     Active Substance: LOPERAMIDE

REACTIONS (6)
  - Weight decreased [Recovering/Resolving]
  - Blood immunoglobulin E increased [Recovering/Resolving]
  - Diarrhoea [Recovering/Resolving]
  - Biopsy intestine abnormal [Recovering/Resolving]
  - Malnutrition [Recovering/Resolving]
  - Vomiting [Recovering/Resolving]
